FAERS Safety Report 6934514-7 (Version None)
Quarter: 2010Q3

REPORT INFORMATION
  Report Type: 
  Country: None (occurrence: None)
  Receive Date: 20100820
  Receipt Date: 20100809
  Transmission Date: 20110219
  Serious: Yes (Hospitalization)
  Sender: FDA-Public Use
  Company Number: DE-WATSON-2010-11018

PATIENT
  Age: 21 Year
  Sex: Male
  Weight: 108 kg

DRUGS (1)
  1. TOPIRAMATE [Suspect]
     Indication: CONDUCT DISORDER
     Dosage: 8000 MG, SINGLE
     Route: 048
     Dates: start: 20040101

REACTIONS (3)
  - OVERDOSE [None]
  - STATUS EPILEPTICUS [None]
  - SUICIDE ATTEMPT [None]
